FAERS Safety Report 7915371-9 (Version None)
Quarter: 2011Q4

REPORT INFORMATION
  Report Type: 
  Country: None (occurrence: None)
  Receive Date: 20111115
  Receipt Date: 20111109
  Transmission Date: 20120403
  Serious: Yes (Other)
  Sender: FDA-Public Use
  Company Number: PHEH2011US05463

PATIENT
  Sex: Female
  Weight: 58.957 kg

DRUGS (7)
  1. LEXAPRO [Concomitant]
     Dosage: 5 MG, UNK
  2. CALCIUM CARBONATE [Concomitant]
     Dosage: UNK UKN, UNK
  3. FORTEO [Concomitant]
  4. GILENYA [Suspect]
     Dosage: 0.5 MG, QD
     Route: 048
  5. AMANTADINE HCL [Concomitant]
     Dosage: 100 MG, UNK
  6. MULTIVITAMIN [Concomitant]
     Dosage: UNK UKN, UNK
  7. VITAMIN D [Concomitant]
     Dosage: 1000 U, UNK

REACTIONS (6)
  - MUSCULOSKELETAL STIFFNESS [None]
  - BLOOD PRESSURE FLUCTUATION [None]
  - DIZZINESS [None]
  - CATARACT [None]
  - DYSKINESIA [None]
  - CHOKING [None]
